FAERS Safety Report 6203163-0 (Version None)
Quarter: 2009Q2

REPORT INFORMATION
  Report Type: 
  Country: None (occurrence: None)
  Receive Date: 20090526
  Receipt Date: 20090526
  Transmission Date: 20091009
  Serious: Yes (Hospitalization)
  Sender: FDA-Public Use
  Company Number: None

PATIENT
  Sex: Male
  Weight: 70.5 kg

DRUGS (12)
  1. CYCLOPHOSPHAMIDE [Suspect]
     Dosage: 1092 MG
  2. DOXIL [Suspect]
     Dosage: 64 MG
  3. .. [Concomitant]
  4. NEULASTA [Suspect]
     Dosage: 6 MG
  5. PREDNISONE [Suspect]
     Dosage: 350 MG
  6. RITUXIMAB (MOAB C2B8 ANTI CD20, CHIMERIC) [Suspect]
     Dosage: 683 MG
  7. VINCRISTINE SULFATE [Suspect]
     Dosage: 2 MG
  8. ASPIRIN [Concomitant]
  9. TACLONEX [Concomitant]
  10. COREG [Concomitant]
  11. CRESTOR [Concomitant]
  12. FLOMAX [Concomitant]

REACTIONS (5)
  - BACTERIAL INFECTION [None]
  - BLOOD CULTURE POSITIVE [None]
  - CHILLS [None]
  - FEBRILE NEUTROPENIA [None]
  - NECK PAIN [None]
